FAERS Safety Report 4356809-6 (Version None)
Quarter: 2004Q2

REPORT INFORMATION
  Report Type: 
  Country: None (occurrence: None)
  Receive Date: 20040507
  Receipt Date: 20040426
  Transmission Date: 20050107
  Serious: Yes (Hospitalization)
  Sender: FDA-Public Use
  Company Number: 04P-114-0258748-00

PATIENT
  Age: 81 Year
  Sex: Female

DRUGS (9)
  1. VALPROATE SODIUM [Suspect]
     Indication: EPILEPSY
     Dosage: 500 MG, 2 IN 1 D, PER ORAL
     Route: 048
     Dates: start: 20040221, end: 20040318
  2. METHIMAZOLE [Concomitant]
  3. LEVOTHYROXINE [Concomitant]
  4. ACENOCOUMAROL [Concomitant]
  5. CAPTOPRIL [Concomitant]
  6. DIGOXIN [Concomitant]
  7. METOPROLOL [Concomitant]
  8. OMEPRAZOLE [Concomitant]
  9. BUMETANIDE [Concomitant]

REACTIONS (4)
  - AMMONIA INCREASED [None]
  - BLOOD LACTATE DEHYDROGENASE INCREASED [None]
  - CONFUSIONAL STATE [None]
  - METABOLIC ENCEPHALOPATHY [None]
